FAERS Safety Report 12971484 (Version 1)
Quarter: 2016Q4

REPORT INFORMATION
  Report Type: Spontaneous
  Country: US (occurrence: US)
  Receive Date: 20161123
  Receipt Date: 20161123
  Transmission Date: 20170207
  Serious: No
  Sender: FDA-Public Use
  Company Number: US-JAZZ-2016-US-020134

PATIENT
  Sex: Female

DRUGS (16)
  1. AMINO 2300 [Concomitant]
  2. ULTRAZYME [Concomitant]
  3. XYREM [Suspect]
     Active Substance: SODIUM OXYBATE
     Indication: CATAPLEXY
     Dosage: DOSE ADJUSTMENT
     Route: 048
     Dates: start: 2015, end: 2016
  4. ADRENAL [Concomitant]
     Active Substance: EPINEPHRINE
  5. ANDROGRAPHIS                       /01657601/ [Concomitant]
  6. CRANACTIN [Concomitant]
     Active Substance: DIETARY SUPPLEMENT
  7. XYREM [Suspect]
     Active Substance: SODIUM OXYBATE
     Dosage: 2.25 G, BID
     Route: 048
     Dates: start: 201609
  8. INF [Concomitant]
     Active Substance: INTERFERON ALFA-2B
  9. XYREM [Suspect]
     Active Substance: SODIUM OXYBATE
     Indication: NARCOLEPSY
     Dosage: 2.25 G, BID
     Route: 048
     Dates: start: 201510, end: 2015
  10. ACIDOPHILUS [Concomitant]
     Active Substance: LACTOBACILLUS ACIDOPHILUS
  11. FOLBEE PLUS [Concomitant]
  12. POTASSIUM [Concomitant]
     Active Substance: POTASSIUM
  13. COD LIVER OIL [Concomitant]
     Active Substance: COD LIVER OIL
  14. DRENAMIN [Concomitant]
  15. EFFEXOR [Concomitant]
     Active Substance: VENLAFAXINE HYDROCHLORIDE
  16. CYCLOBENZAPRINE [Concomitant]
     Active Substance: CYCLOBENZAPRINE

REACTIONS (1)
  - Feeling abnormal [Not Recovered/Not Resolved]
